FAERS Safety Report 12679850 (Version 1)
Quarter: 2016Q3

REPORT INFORMATION
  Report Type: Spontaneous
  Country: US (occurrence: US)
  Receive Date: 20160824
  Receipt Date: 20160824
  Transmission Date: 20161109
  Serious: No
  Sender: FDA-Public Use
  Company Number: US-JNJFOC-20160609200

PATIENT
  Sex: Female

DRUGS (1)
  1. NIZORAL A-D [Suspect]
     Active Substance: KETOCONAZOLE
     Indication: SKIN DISORDER
     Route: 061

REACTIONS (3)
  - Eye swelling [Unknown]
  - Eye irritation [Unknown]
  - Product odour abnormal [Unknown]
